FAERS Safety Report 9166445 (Version 2)
Quarter: 2013Q2

REPORT INFORMATION
  Report Type: Spontaneous
  Country: US (occurrence: US)
  Receive Date: 20130315
  Receipt Date: 20130419
  Transmission Date: 20140414
  Serious: Yes (Other)
  Sender: FDA-Public Use
  Company Number: CHPA2013US004451

PATIENT
  Sex: Male

DRUGS (4)
  1. EX-LAX MAX STR LAX PILLS SENNA [Suspect]
     Indication: CONSTIPATION
     Dosage: 2 DF, ONCE/SINGLE
     Route: 048
     Dates: start: 20130310, end: 20130310
  2. ANTIBIOTIC                         /00121001/ [Concomitant]
     Dosage: UNK, UNK
     Route: 048
  3. EASYLAX                            /00259101/ [Concomitant]
     Dosage: UNK, UNK
  4. MUSCLE RELAXANTS [Concomitant]
     Dosage: UNK, UNK
     Route: 048

REACTIONS (2)
  - Local swelling [Not Recovered/Not Resolved]
  - Drug ineffective [Unknown]
